FAERS Safety Report 10517471 (Version 4)
Quarter: 2015Q2

REPORT INFORMATION
  Report Type: Report from Study
  Country: AR (occurrence: AR)
  Receive Date: 20141014
  Receipt Date: 20150508
  Transmission Date: 20150821
  Serious: Yes (Other)
  Sender: FDA-Public Use
  Company Number: AR-ABBVIE-14K-007-1293987-00

PATIENT
  Age: 63 Year
  Sex: Male

DRUGS (1)
  1. HUMIRA [Suspect]
     Active Substance: ADALIMUMAB
     Indication: RHEUMATOID ARTHRITIS
     Route: 058
     Dates: start: 20120801

REACTIONS (8)
  - Rheumatoid arthritis [Unknown]
  - Ankle deformity [Unknown]
  - Gait disturbance [Unknown]
  - Skin ulcer [Recovering/Resolving]
  - Patient-device incompatibility [Unknown]
  - Skin odour abnormal [Unknown]
  - Localised infection [Unknown]
  - Pain in extremity [Unknown]

NARRATIVE: CASE EVENT DATE: 2014
